FAERS Safety Report 6655710-2 (Version None)
Quarter: 2010Q1

REPORT INFORMATION
  Report Type: 
  Country: None (occurrence: None)
  Receive Date: 20100329
  Receipt Date: 20100323
  Transmission Date: 20100710
  Serious: Yes (Hospitalization, Other)
  Sender: FDA-Public Use
  Company Number: BR-ROCHE-597453

PATIENT
  Sex: Female
  Weight: 60 kg

DRUGS (12)
  1. TOCILIZUMAB [Suspect]
     Indication: RHEUMATOID ARTHRITIS
     Dosage: ROUTE: ENDOVENOUS, FORM: INFUSION
     Route: 050
     Dates: start: 20100114
  2. RITUXIMAB [Suspect]
     Indication: RHEUMATOID ARTHRITIS
     Dosage: FORM: INFUSION, DOSE: 1000 MG/ML. ROUTE: ENDOVENOUS
     Route: 050
     Dates: start: 20081101, end: 20081101
  3. SOLU-MEDROL [Suspect]
     Indication: ALLERGY PROPHYLAXIS
     Route: 065
     Dates: start: 20081101, end: 20081101
  4. SOLUPRED [Suspect]
     Indication: ALLERGY PROPHYLAXIS
     Route: 065
     Dates: start: 20081101, end: 20081101
  5. REMICADE [Suspect]
     Indication: DRUG USE FOR UNKNOWN INDICATION
     Dosage: FORM: INFUSION
     Route: 065
  6. LEVEMIR [Concomitant]
  7. NOVORAPID [Concomitant]
  8. HUMALOG [Concomitant]
  9. LEXOTAN [Concomitant]
     Indication: SLEEP DISORDER THERAPY
     Route: 048
  10. TYLENOL-500 [Concomitant]
     Indication: PAIN
     Route: 048
  11. PREDNISONE [Concomitant]
     Indication: PAIN
  12. NPH INSULIN [Concomitant]
     Dosage: DOSE: 28 UI/DAY; DRUG REPORTED: NPH INSULIN

REACTIONS (21)
  - ABDOMINAL PAIN [None]
  - ARTHRALGIA [None]
  - BLOOD CHOLESTEROL INCREASED [None]
  - BLOOD PRESSURE INCREASED [None]
  - DIABETES MELLITUS INADEQUATE CONTROL [None]
  - DRUG INEFFECTIVE [None]
  - DRY THROAT [None]
  - FEELING ABNORMAL [None]
  - HYPERGLYCAEMIA [None]
  - HYPERSENSITIVITY [None]
  - MALAISE [None]
  - NEPHROLITHIASIS [None]
  - RASH MACULAR [None]
  - SEDATION [None]
  - SKIN DEPIGMENTATION [None]
  - SKIN DISCOLOURATION [None]
  - SOMNOLENCE [None]
  - TREMOR [None]
  - URINARY TRACT INFECTION [None]
  - VITILIGO [None]
  - VOMITING [None]
